FAERS Safety Report 4913660-3 (Version None)
Quarter: 2006Q1

REPORT INFORMATION
  Report Type: 
  Country: None (occurrence: None)
  Receive Date: 20060216
  Receipt Date: 20060207
  Transmission Date: 20060701
  Serious: Yes (Hospitalization)
  Sender: FDA-Public Use
  Company Number: GB-JNJFOC-20050601373

PATIENT
  Sex: Female

DRUGS (1)
  1. TOPAMAX [Suspect]
     Indication: EPILEPSY
     Route: 048

REACTIONS (7)
  - ABDOMINAL PAIN [None]
  - GASTRITIS [None]
  - GASTROINTESTINAL DISORDER [None]
  - INFLAMMATION [None]
  - LYMPHADENOPATHY [None]
  - NEPHRITIS [None]
  - RENAL DISORDER [None]
